FAERS Safety Report 17649360 (Version 1)
Quarter: 2020Q2

REPORT INFORMATION
  Report Type: Spontaneous
  Country: CN (occurrence: CN)
  Receive Date: 20200408
  Receipt Date: 20200408
  Transmission Date: 20200713
  Serious: Yes (Hospitalization, Other)
  Sender: FDA-Public Use
  Company Number: CN-GILEAD-2020-0458264

PATIENT
  Age: 76 Year
  Sex: Male

DRUGS (1)
  1. HEPSERA [Suspect]
     Active Substance: ADEFOVIR DIPIVOXIL
     Indication: PRODUCT USED FOR UNKNOWN INDICATION
     Dosage: 10 MG, QD
     Route: 048
     Dates: start: 20000308, end: 20200309

REACTIONS (6)
  - Fanconi syndrome [Recovering/Resolving]
  - Diabetic ketoacidosis [Unknown]
  - Hypophosphataemic osteomalacia [Unknown]
  - Pain [Unknown]
  - Renal tubular acidosis [Unknown]
  - Condition aggravated [Unknown]

NARRATIVE: CASE EVENT DATE: 20200307
